FAERS Safety Report 19677069 (Version 1)
Quarter: 2021Q3

REPORT INFORMATION
  Report Type: Spontaneous
  Country: CA (occurrence: CA)
  Receive Date: 20210809
  Receipt Date: 20210809
  Transmission Date: 20211014
  Serious: Yes (Hospitalization)
  Sender: FDA-Public Use
  Company Number: CA-PFIZER INC-202100968758

PATIENT
  Age: 57 Year
  Sex: Female

DRUGS (5)
  1. FRAGMIN [Suspect]
     Active Substance: DALTEPARIN SODIUM
     Dosage: 16000 IU, 1X/DAY
     Route: 058
  2. DECADRON [Concomitant]
     Active Substance: DEXAMETHASONE
  3. CALCIUM + VITAMIN D [CALCIUM;COLECALCIFEROL] [Concomitant]
     Active Substance: CALCIUM\CHOLECALCIFEROL
  4. PROLIA [Concomitant]
     Active Substance: DENOSUMAB
  5. LYRICA [Concomitant]
     Active Substance: PREGABALIN
     Indication: OVARIAN CANCER METASTATIC

REACTIONS (2)
  - Upper gastrointestinal haemorrhage [Recovered/Resolved]
  - Peptic ulcer haemorrhage [Recovered/Resolved]
